FAERS Safety Report 14336487 (Version 2)
Quarter: 2018Q1

REPORT INFORMATION
  Report Type: Spontaneous
  Country: US (occurrence: US)
  Receive Date: 20171229
  Receipt Date: 20180104
  Transmission Date: 20180509
  Serious: Yes (Other)
  Sender: FDA-Public Use
  Company Number: US-PFIZER INC-2017550084

PATIENT
  Age: 63 Year
  Sex: Male

DRUGS (2)
  1. EPINEPHRINE/LIDOCAINE HYDROCHLORIDE [Suspect]
     Active Substance: EPINEPHRINE\LIDOCAINE HYDROCHLORIDE
     Dosage: TEST DOSE OF 3CC OF 1.5% LIDOCAINE WITH 1:200,000 EPINEPHRINE
  2. EPINEPHRINE/LIDOCAINE HYDROCHLORIDE [Suspect]
     Active Substance: EPINEPHRINE\LIDOCAINE HYDROCHLORIDE
     Indication: LOCAL ANAESTHESIA
     Dosage: 17 CC OF 2% LIDOCAINE WITH 1:200,000 EPINEPHRINE
     Route: 008

REACTIONS (1)
  - Atrial fibrillation [Unknown]
